FAERS Safety Report 14346023 (Version 2)
Quarter: 2018Q1

REPORT INFORMATION
  Report Type: Spontaneous
  Country: JP (occurrence: JP)
  Receive Date: 20180103
  Receipt Date: 20180116
  Transmission Date: 20180509
  Serious: Yes (Other)
  Sender: FDA-Public Use
  Company Number: JP-MYLANLABS-2017M1080676

PATIENT
  Age: 41 Year
  Sex: Male
  Weight: 80 kg

DRUGS (2)
  1. OLANZAPINE. [Suspect]
     Active Substance: OLANZAPINE
     Indication: SCHIZOPHRENIA
     Dosage: INITIAL DOSE NOT STATED; THEN DOSE GRADUALLY INCREASED
     Route: 065
  2. OLANZAPINE. [Suspect]
     Active Substance: OLANZAPINE
     Dosage: INCREASED TO 20MG/DAY OVER 2 WEEKS
     Route: 065

REACTIONS (2)
  - Hyperphagia [Recovering/Resolving]
  - Weight increased [Recovering/Resolving]
